FAERS Safety Report 6628700-3 (Version None)
Quarter: 2010Q1

REPORT INFORMATION
  Report Type: 
  Country: None (occurrence: None)
  Receive Date: 20100311
  Receipt Date: 20100301
  Transmission Date: 20100710
  Serious: Yes (Hospitalization, Other)
  Sender: FDA-Public Use
  Company Number: US-ELI_LILLY_AND_COMPANY-US201002001183

PATIENT
  Age: 62 Year
  Sex: Male
  Weight: 92.971 kg

DRUGS (12)
  1. BYETTA [Suspect]
     Indication: TYPE 2 DIABETES MELLITUS
     Dosage: 5 UG, 2/D
     Dates: start: 20100114, end: 20100125
  2. ZANTAC [Concomitant]
     Dosage: 150 MG, 2/D
  3. SIMCOR [Concomitant]
     Dosage: UNK, EACH EVENING
  4. PLAVIX [Concomitant]
     Dosage: 75 MG, DAILY (1/D)
  5. LISINOPRIL [Concomitant]
     Dosage: 5 MG, DAILY (1/D)
  6. LOVAZA [Concomitant]
     Dosage: UNK, DAILY (1/D)
  7. PERCOCET [Concomitant]
     Dosage: UNK, EACH EVENING
  8. PROTONIX [Concomitant]
     Dosage: 40 MG, UNK
  9. SPECTAZOLE [Concomitant]
     Route: 061
  10. VICODIN [Concomitant]
     Dosage: UNK, AS NEEDED
  11. BYSTOLIC [Concomitant]
     Dosage: 10 MG, DAILY (1/D)
  12. ASPIRIN [Concomitant]
     Dosage: 325 MG, DAILY (1/D)

REACTIONS (4)
  - FLANK PAIN [None]
  - PANCREATITIS [None]
  - PEPTIC ULCER [None]
  - WEIGHT DECREASED [None]
